FAERS Safety Report 10596461 (Version 2)
Quarter: 2014Q4

REPORT INFORMATION
  Report Type: Spontaneous
  Country: AR (occurrence: AR)
  Receive Date: 20141120
  Receipt Date: 20141217
  Transmission Date: 20150529
  Serious: No
  Sender: FDA-Public Use
  Company Number: PHHY2014AR151854

PATIENT
  Sex: Female

DRUGS (1)
  1. DIOVAN [Suspect]
     Active Substance: VALSARTAN
     Indication: HYPERTENSION
     Dosage: 1 DF (320 MG), QD
     Route: 048

REACTIONS (5)
  - Hypertension [Recovering/Resolving]
  - Dizziness [Recovering/Resolving]
  - Nervousness [Unknown]
  - Concomitant disease aggravated [Unknown]
  - Pain [Unknown]
